FAERS Safety Report 12827100 (Version 1)
Quarter: 2016Q4

REPORT INFORMATION
  Report Type: Spontaneous
  Country: US (occurrence: US)
  Receive Date: 20161006
  Receipt Date: 20161006
  Transmission Date: 20170207
  Serious: No
  Sender: FDA-Public Use
  Company Number: US-INDIVIOR LIMITED-INDV-089082-2016

PATIENT
  Age: 62 Year
  Sex: Female

DRUGS (3)
  1. XANAX [Concomitant]
     Active Substance: ALPRAZOLAM
     Indication: ANXIETY
     Dosage: 0.5 MG, QD FOR ABOUT 12 YEARS
     Route: 048
     Dates: start: 2004, end: 20160314
  2. SUBOXONE [Suspect]
     Active Substance: BUPRENORPHINE HYDROCHLORIDE\NALOXONE HYDROCHLORIDE
     Indication: DRUG DEPENDENCE
     Dosage: 8 MG, BID
     Route: 060
     Dates: start: 20160314, end: 20160316
  3. ATIVAN [Concomitant]
     Active Substance: LORAZEPAM
     Indication: ANXIETY
     Dosage: UNKNOWN DOSES, DAILY FOR ABOUT ONE MONTH
     Route: 048
     Dates: start: 201602, end: 201603

REACTIONS (4)
  - Anxiety [Not Recovered/Not Resolved]
  - Product use issue [Recovered/Resolved]
  - Drug withdrawal syndrome [Not Recovered/Not Resolved]
  - Intentional underdose [Recovered/Resolved]

NARRATIVE: CASE EVENT DATE: 20160314
